FAERS Safety Report 16901839 (Version 1)
Quarter: 2019Q4

REPORT INFORMATION
  Report Type: Spontaneous
  Country: US (occurrence: US)
  Receive Date: 20191010
  Receipt Date: 20191010
  Transmission Date: 20200122
  Serious: Yes (Other)
  Sender: FDA-Public Use
  Company Number: US-ROCHE-2434194

PATIENT
  Sex: Male

DRUGS (1)
  1. ESBRIET [Suspect]
     Active Substance: PIRFENIDONE
     Indication: IDIOPATHIC PULMONARY FIBROSIS
     Dosage: 1 TABLET 3 TIMES DAILY FOR 1ST WEEK, 2 TABLETS 3 TIMES DAILY FOR 2ST WEEK, 3 TABLETS 3 TIMES DAILY F
     Route: 048
     Dates: start: 20190912

REACTIONS (1)
  - Haemoptysis [Not Recovered/Not Resolved]
